FAERS Safety Report 16597126 (Version 1)
Quarter: 2019Q3

REPORT INFORMATION
  Report Type: Spontaneous
  Country: US (occurrence: US)
  Receive Date: 20190605
  Receipt Date: 20190605
  Transmission Date: 20191004
  Serious: Yes (Hospitalization)
  Sender: FDA-Public Use
  Company Number: None

PATIENT
  Age: 17 Year
  Sex: Male
  Weight: 89.7 kg

DRUGS (2)
  1. VINCRISTINE SULFATE. [Suspect]
     Active Substance: VINCRISTINE SULFATE
     Dates: end: 20190515
  2. BLEOMYCIN [Suspect]
     Active Substance: BLEOMYCIN SULFATE
     Dates: end: 20190515

REACTIONS (7)
  - Pallor [None]
  - Malaise [None]
  - Tachycardia [None]
  - Anaemia [None]
  - Hypotension [None]
  - Febrile neutropenia [None]
  - Chills [None]

NARRATIVE: CASE EVENT DATE: 20190523
